FAERS Safety Report 7884056-X (Version None)
Quarter: 2011Q4

REPORT INFORMATION
  Report Type: 
  Country: None (occurrence: None)
  Receive Date: 20111102
  Receipt Date: 20111028
  Transmission Date: 20120403
  Serious: Yes (Death, Hospitalization)
  Sender: FDA-Public Use
  Company Number: PHEH2011US02457

PATIENT
  Sex: Female

DRUGS (1)
  1. RECLAST [Suspect]
     Dosage: 5 MG, YEARLY
     Route: 042

REACTIONS (28)
  - AORTIC STENOSIS [None]
  - CONFUSIONAL STATE [None]
  - ATRIAL FIBRILLATION [None]
  - PNEUMONIA [None]
  - BLOOD CREATININE INCREASED [None]
  - INTERNATIONAL NORMALISED RATIO INCREASED [None]
  - METABOLIC ACIDOSIS [None]
  - BLOOD BICARBONATE DECREASED [None]
  - GLOMERULAR FILTRATION RATE DECREASED [None]
  - BLOOD URIC ACID INCREASED [None]
  - DEATH [None]
  - MITRAL VALVE INCOMPETENCE [None]
  - CARDIAC INFECTION [None]
  - BLOOD PRESSURE IMMEASURABLE [None]
  - SEPTIC SHOCK [None]
  - HEPATIC ENZYME INCREASED [None]
  - GASTROINTESTINAL HAEMORRHAGE [None]
  - HAEMOGLOBIN DECREASED [None]
  - CARDIAC ARREST [None]
  - BLOOD PHOSPHORUS INCREASED [None]
  - BRAIN NATRIURETIC PEPTIDE INCREASED [None]
  - NEUTROPHIL COUNT DECREASED [None]
  - HEART RATE DECREASED [None]
  - BLOOD LACTATE DEHYDROGENASE INCREASED [None]
  - BACTERIAL TEST POSITIVE [None]
  - BLOOD POTASSIUM INCREASED [None]
  - WHITE BLOOD CELL COUNT INCREASED [None]
  - ASTHENIA [None]
